FAERS Safety Report 6696665-4 (Version None)
Quarter: 2010Q2

REPORT INFORMATION
  Report Type: 
  Country: None (occurrence: None)
  Receive Date: 20100426
  Receipt Date: 20100416
  Transmission Date: 20101027
  Serious: Yes (Life-Threatening, Hospitalization)
  Sender: FDA-Public Use
  Company Number: FR-ABBOTT-10P-056-0639129-00

PATIENT
  Sex: Male

DRUGS (5)
  1. LIPANTHYL [Suspect]
     Indication: DRUG USE FOR UNKNOWN INDICATION
     Route: 048
     Dates: start: 20070501, end: 20100226
  2. ASPEGIC 1000 [Suspect]
     Indication: DRUG USE FOR UNKNOWN INDICATION
     Dates: end: 20100226
  3. DEROXAT [Suspect]
     Indication: DRUG USE FOR UNKNOWN INDICATION
     Dates: end: 20100226
  4. AMLOR [Suspect]
     Indication: DRUG USE FOR UNKNOWN INDICATION
     Dates: end: 20100226
  5. PERMIXON [Suspect]
     Indication: DRUG USE FOR UNKNOWN INDICATION
     Dates: end: 20100226

REACTIONS (3)
  - PANCREATITIS NECROTISING [None]
  - RENAL FAILURE [None]
  - RESPIRATORY FAILURE [None]
